FAERS Safety Report 4478833-5 (Version None)
Quarter: 2004Q3

REPORT INFORMATION
  Report Type: 
  Country: None (occurrence: None)
  Receive Date: 20040923
  Receipt Date: 20040720
  Transmission Date: 20050211
  Serious: No
  Sender: FDA-Public Use
  Company Number: USA040773193

PATIENT
  Age: 75 Year
  Sex: Female

DRUGS (10)
  1. FORTEO [Suspect]
     Indication: OSTEOPOROSIS
     Dates: start: 20030701
  2. INSULIN NOVOLIN [Concomitant]
  3. POTASSIUM [Concomitant]
  4. ALLEGRA [Concomitant]
  5. ISOSORBIDE [Concomitant]
  6. ZOCOR [Concomitant]
  7. HYDROCHLORZIDE (HYDROCHLOROTHIAZIDE) [Concomitant]
  8. NORVASC [Concomitant]
  9. ALTACE [Concomitant]
  10. PLAVIX [Concomitant]

REACTIONS (4)
  - DIZZINESS [None]
  - MUSCLE CRAMP [None]
  - NAUSEA [None]
  - SOMNOLENCE [None]
